FAERS Safety Report 5354797-7 (Version None)
Quarter: 2007Q2

REPORT INFORMATION
  Report Type: 
  Country: None (occurrence: None)
  Receive Date: 20070612
  Receipt Date: 20070606
  Transmission Date: 20071010
  Serious: Yes (Other)
  Sender: FDA-Public Use
  Company Number: TH-PFIZER INC-2007044383

PATIENT
  Age: 73 Year
  Sex: Male

DRUGS (4)
  1. VIAGRA [Suspect]
     Route: 048
  2. NORVASC [Concomitant]
     Route: 048
  3. ANAPRIL [Concomitant]
     Route: 048
  4. ZOCOR [Concomitant]
     Route: 048

REACTIONS (2)
  - HOT FLUSH [None]
  - PROSTATIC OPERATION [None]
